FAERS Safety Report 9433680 (Version 2)
Quarter: 2013Q3

REPORT INFORMATION
  Report Type: Spontaneous
  Country: DE (occurrence: DE)
  Receive Date: 20130731
  Receipt Date: 20130820
  Transmission Date: 20140515
  Serious: Yes (Death)
  Sender: FDA-Public Use
  Company Number: DE-BIOMARINAP-DE-2013-101205

PATIENT
  Sex: Female
  Weight: 30 kg

DRUGS (3)
  1. ALDURAZYME [Suspect]
     Indication: MUCOPOLYSACCHARIDOSIS I
     Dosage: UNK, QW
     Route: 042
     Dates: start: 20030825, end: 20130712
  2. FENISTIL [Concomitant]
     Indication: PREMEDICATION
  3. LAMOTRIGIN [Concomitant]
     Indication: EPILEPSY

REACTIONS (3)
  - Death [Fatal]
  - Infection [Unknown]
  - Cough [Unknown]
